FAERS Safety Report 16467316 (Version 1)
Quarter: 2019Q2

REPORT INFORMATION
  Report Type: Spontaneous
  Country: ES (occurrence: ES)
  Receive Date: 20190624
  Receipt Date: 20190624
  Transmission Date: 20190711
  Serious: Yes (Hospitalization)
  Sender: FDA-Public Use
  Company Number: ES-ROCHE-2327622

PATIENT
  Age: 65 Year
  Sex: Female

DRUGS (1)
  1. MABTHERA [Suspect]
     Active Substance: RITUXIMAB
     Indication: B-CELL LYMPHOMA
     Route: 058

REACTIONS (4)
  - Intentional product use issue [Unknown]
  - Abdominal operation [Unknown]
  - Pain [Recovered/Resolved]
  - Limb mass [Recovered/Resolved]

NARRATIVE: CASE EVENT DATE: 20181029
